FAERS Safety Report 8851342 (Version 4)
Quarter: 2013Q3

REPORT INFORMATION
  Report Type: Report from Study
  Country: JP (occurrence: JP)
  Receive Date: 20121022
  Receipt Date: 20130711
  Transmission Date: 20140515
  Serious: Yes (Disabling, Other)
  Sender: FDA-Public Use
  Company Number: JP-009507513-2012SP036317

PATIENT
  Age: 51 Year
  Sex: Female
  Weight: 50 kg

DRUGS (11)
  1. PEGINTRON [Suspect]
     Indication: CHRONIC HEPATITIS C
     Dosage: 1.6 MICROGRAM PER KILOGRAM, QW,DAILY DOSE UNKNOWN
     Route: 058
     Dates: start: 20120405, end: 20120518
  2. PEGINTRON [Suspect]
     Dosage: 1.65 MICROGRAM PER KILOGRAM, QW
     Route: 058
     Dates: end: 20120912
  3. REBETOL [Suspect]
     Indication: CHRONIC HEPATITIS C
     Dosage: 600 MG, QD
     Route: 048
     Dates: start: 20120405, end: 20120515
  4. REBETOL [Suspect]
     Dosage: 400 MG, QD
     Route: 048
     Dates: start: 20120516, end: 20120518
  5. REBETOL [Suspect]
     Dosage: 400 MG, QD
     Route: 048
     Dates: start: 20120606, end: 20120918
  6. TELAVIC [Suspect]
     Indication: CHRONIC HEPATITIS C
     Dosage: 1500 MG, QD
     Route: 048
     Dates: start: 20120405, end: 20120518
  7. THYRADIN-S [Concomitant]
     Indication: AUTOIMMUNE THYROIDITIS
     Dosage: 12.5 MICROGRAM, QD
     Route: 048
  8. THYRADIN-S [Concomitant]
     Indication: HYPOTHYROIDISM
     Dosage: 25 MICROGRAM, QD
     Route: 048
     Dates: start: 20120425
  9. THYRADIN-S [Concomitant]
     Dosage: 50 MICROGRAM, QD
     Route: 048
     Dates: start: 20120523
  10. THYRADIN-S [Concomitant]
     Dosage: 75 MICROGRAM, QD
     Route: 048
     Dates: start: 20120620
  11. GASTER D [Concomitant]
     Indication: PROPHYLAXIS
     Dosage: 20 MG, QD,FORMULATION:POR
     Dates: end: 20120620

REACTIONS (3)
  - Erythema [Recovered/Resolved]
  - Stevens-Johnson syndrome [Recovering/Resolving]
  - Stevens-Johnson syndrome [Recovered/Resolved]
